FAERS Safety Report 11994623 (Version 1)
Quarter: 2016Q1

REPORT INFORMATION
  Report Type: Spontaneous
  Country: US (occurrence: US)
  Receive Date: 20160203
  Receipt Date: 20160203
  Transmission Date: 20160526
  Serious: No
  Sender: FDA-Public Use
  Company Number: US-UCBSA-2015036078

PATIENT
  Sex: Female

DRUGS (3)
  1. KEPPRA [Suspect]
     Active Substance: LEVETIRACETAM
     Dosage: DOSE: 750MG
  2. VALPARIN CHRONO [Concomitant]
     Indication: PETIT MAL EPILEPSY
     Dosage: 200+300MG DAILY
  3. KEPPRA [Suspect]
     Active Substance: LEVETIRACETAM
     Indication: PETIT MAL EPILEPSY
     Dosage: DOSE: 500MG
     Dates: start: 2013

REACTIONS (5)
  - Depression [Not Recovered/Not Resolved]
  - Fatigue [Not Recovered/Not Resolved]
  - Drug ineffective [Unknown]
  - Road traffic accident [Unknown]
  - Tension [Not Recovered/Not Resolved]

NARRATIVE: CASE EVENT DATE: 2015
